FAERS Safety Report 7211295-3 (Version None)
Quarter: 2011Q1

REPORT INFORMATION
  Report Type: 
  Country: None (occurrence: None)
  Receive Date: 20110105
  Receipt Date: 20101229
  Transmission Date: 20110831
  Serious: Yes (Hospitalization)
  Sender: FDA-Public Use
  Company Number: DE-ABBOTT-10P-062-0645796-00

PATIENT
  Sex: Female
  Weight: 51 kg

DRUGS (1)
  1. HUMIRA [Suspect]
     Indication: CROHN'S DISEASE
     Route: 058
     Dates: start: 20090421, end: 20100505

REACTIONS (4)
  - EPILEPSY [None]
  - ELECTROENCEPHALOGRAM ABNORMAL [None]
  - PREMENSTRUAL SYNDROME [None]
  - SYNCOPE [None]
